FAERS Safety Report 20333851 (Version 1)
Quarter: 2022Q1

REPORT INFORMATION
  Report Type: Spontaneous
  Country: US (occurrence: US)
  Receive Date: 20220113
  Receipt Date: 20220113
  Transmission Date: 20220423
  Serious: No
  Sender: FDA-Public Use
  Company Number: US-PFIZER INC-202101883205

PATIENT
  Age: 72 Year
  Sex: Female
  Weight: 63.5 kg

DRUGS (16)
  1. PREMARIN [Suspect]
     Active Substance: ESTROGENS, CONJUGATED
     Indication: Vulvovaginal pain
     Dosage: 0.625 MG (2-3 TIMES A WEEK )
     Route: 067
  2. ALPRAZOLAM [Concomitant]
     Active Substance: ALPRAZOLAM
     Dosage: 0.5 MG, DAILY ( TAKES 2 A DAY)
  3. AMLODIPINE BESYLATE [Concomitant]
     Active Substance: AMLODIPINE BESYLATE
     Dosage: 10 MG, DAILY (TAKES 1 A DAY)
  4. CLONIDINE HYDROCHLORIDE [Concomitant]
     Active Substance: CLONIDINE HYDROCHLORIDE
     Dosage: 0.4 MG, DAILY (TAKES 2 A DAY)
  5. HYDROCHLOROTHIAZIDE [Concomitant]
     Active Substance: HYDROCHLOROTHIAZIDE
     Dosage: 25 MG, DAILY (TAKES 1 A DAY)
  6. HYDRALAZINE [Concomitant]
     Active Substance: HYDRALAZINE HYDROCHLORIDE
     Dosage: 50 MG, 3X/DAY (TAKES 1 THREE TIMES A DAY)
  7. LISINOPRIL [Concomitant]
     Active Substance: LISINOPRIL
     Dosage: 40 MG, DAILY (TAKES ONE A DAY)
  8. METOPROLOL [Concomitant]
     Active Substance: METOPROLOL
     Dosage: 50 MG, DAILY (TAKES ONE A DAY)
  9. MOTEGRITY [Concomitant]
     Active Substance: PRUCALOPRIDE SUCCINATE
     Dosage: 2 MG, DAILY (TAKES ONE A DAY)
  10. FUROSEMIDE [Concomitant]
     Active Substance: FUROSEMIDE
     Dosage: 20 MG, DAILY (TAKES ONE A DAY)
  11. POTASSIUM [Concomitant]
     Active Substance: POTASSIUM
     Dosage: 20 MEQ, DAILY (TAKES 2 A DAY)
  12. OMEPRAZOLE [Concomitant]
     Active Substance: OMEPRAZOLE
     Dosage: 1 DF, DAILY (TAKES 1 A DAY)
  13. TYLENOL EXTRA STRENGTH [Concomitant]
     Active Substance: ACETAMINOPHEN
     Dosage: 1 DF, 3X/DAY (TAKES ONE 3 TIMES A DAY )
  14. FISH OIL [Concomitant]
     Active Substance: FISH OIL
     Dosage: 1 DF, DAILY (TAKES ONE A DAY)
  15. NYSTATIN AND TRIAMCINOLONE ACETONIDE [Concomitant]
     Active Substance: NYSTATIN\TRIAMCINOLONE ACETONIDE
     Dosage: UNK UNK, AS NEEDED
  16. RETIN-A [Concomitant]
     Active Substance: TRETINOIN
     Dosage: UNK UNK, AS NEEDED

REACTIONS (2)
  - Vulvovaginal pain [Recovered/Resolved]
  - Illness [Unknown]
